FAERS Safety Report 23185266 (Version 1)
Quarter: 2023Q4

REPORT INFORMATION
  Report Type: Spontaneous
  Country: DE (occurrence: DE)
  Receive Date: 20231115
  Receipt Date: 20231115
  Transmission Date: 20240110
  Serious: Yes (Hospitalization, Other)
  Sender: FDA-Public Use
  Company Number: DE-NOVPHSZ-PHHY2018DE192159

PATIENT
  Age: 75 Year
  Sex: Male
  Weight: 81 kg

DRUGS (23)
  1. CHOLECALCIFEROL [Suspect]
     Active Substance: CHOLECALCIFEROL
     Indication: Osteoporosis
     Dosage: 1000 IU, UNK
     Route: 048
  2. ENOXAPARIN SODIUM [Suspect]
     Active Substance: ENOXAPARIN SODIUM
     Indication: Venous thrombosis limb
     Dosage: UNK
     Route: 065
  3. NADROPARIN CALCIUM [Suspect]
     Active Substance: NADROPARIN CALCIUM
     Indication: Venous thrombosis limb
     Dosage: UNK
     Route: 065
  4. NADROPARIN [Suspect]
     Active Substance: NADROPARIN
     Indication: Venous thrombosis limb
     Dosage: UNK
     Route: 065
  5. PROLIA [Suspect]
     Active Substance: DENOSUMAB
     Indication: Osteoporosis
     Dosage: 60 MG, QMO
     Route: 065
     Dates: start: 201405
  6. QUETIAPINE [Suspect]
     Active Substance: QUETIAPINE
     Indication: Product used for unknown indication
     Dosage: 25 MG, QD
     Route: 065
  7. TOCILIZUMAB [Suspect]
     Active Substance: TOCILIZUMAB
     Dosage: 162 MG, UNK, EVERY 10 DAYS
     Route: 058
     Dates: start: 20180414
  8. TOCILIZUMAB [Suspect]
     Active Substance: TOCILIZUMAB
     Dosage: 162 MG, BID
     Route: 058
     Dates: start: 20140601, end: 201506
  9. TOCILIZUMAB [Suspect]
     Active Substance: TOCILIZUMAB
     Dosage: 162 MG, BID
     Route: 058
  10. TOCILIZUMAB [Suspect]
     Active Substance: TOCILIZUMAB
     Dosage: 162 MG, UNK
     Route: 058
  11. TOCILIZUMAB [Suspect]
     Active Substance: TOCILIZUMAB
     Indication: Myalgia
     Dosage: 162 MG, EVERY 12 DAYS
     Route: 058
  12. TOCILIZUMAB [Suspect]
     Active Substance: TOCILIZUMAB
     Dosage: 162 MG, EVERY 14 DAYS
     Route: 058
  13. TOCILIZUMAB [Suspect]
     Active Substance: TOCILIZUMAB
     Indication: Rheumatoid arthritis
     Dosage: 324 MG, QD
     Route: 058
     Dates: start: 20140601, end: 201506
  14. TOCILIZUMAB [Suspect]
     Active Substance: TOCILIZUMAB
     Dosage: 324 MG, QD
     Route: 058
     Dates: start: 20180414
  15. TOCILIZUMAB [Suspect]
     Active Substance: TOCILIZUMAB
     Dosage: 324 MG, QD
     Route: 058
  16. TOCILIZUMAB [Suspect]
     Active Substance: TOCILIZUMAB
     Dosage: 162 MG, Q2W
     Route: 058
     Dates: start: 201704, end: 20171025
  17. TOCILIZUMAB [Suspect]
     Active Substance: TOCILIZUMAB
     Indication: Vasculitis
     Dosage: 324 MG, QD
     Route: 058
     Dates: start: 20150706
  18. AMLODIPINE [Concomitant]
     Active Substance: AMLODIPINE BESYLATE
     Indication: Product used for unknown indication
     Dosage: 2.5 MG, QD
     Route: 065
  19. AMLODIPINE [Concomitant]
     Active Substance: AMLODIPINE BESYLATE
     Dosage: 5 MG, QD
     Route: 065
  20. CORTISONE ACETATE [Concomitant]
     Active Substance: CORTISONE ACETATE
     Indication: Product used for unknown indication
     Dosage: UNK
     Route: 065
  21. ESCITALOPRAM [Concomitant]
     Active Substance: ESCITALOPRAM OXALATE
     Indication: Product used for unknown indication
     Dosage: UNK
     Route: 065
  22. LISINOPRIL [Concomitant]
     Active Substance: LISINOPRIL
     Indication: Product used for unknown indication
     Dosage: UNK
     Route: 065
  23. PANTOPRAZOLE [Concomitant]
     Active Substance: PANTOPRAZOLE
     Indication: Product used for unknown indication
     Dosage: UNK
     Route: 065

REACTIONS (27)
  - Depression [Not Recovered/Not Resolved]
  - Impaired healing [Recovered/Resolved]
  - Lymphoedema [Recovered/Resolved]
  - Erysipelas [Recovering/Resolving]
  - Prostate cancer [Recovered/Resolved]
  - Venous thrombosis limb [Not Recovered/Not Resolved]
  - Dysuria [Unknown]
  - Platelet count decreased [Unknown]
  - Autoimmune disorder [Unknown]
  - Suture rupture [Recovered/Resolved]
  - Hyperaesthesia [Unknown]
  - Soft tissue disorder [Recovered/Resolved]
  - Fall [Unknown]
  - Lymphocele [Recovered/Resolved]
  - Sleep disorder [Unknown]
  - Sepsis [Recovering/Resolving]
  - C-reactive protein increased [Recovering/Resolving]
  - Bronchitis [Not Recovered/Not Resolved]
  - Wound dehiscence [Recovered/Resolved]
  - Impaired healing [Recovered/Resolved]
  - Acetabulum fracture [Recovering/Resolving]
  - Eye inflammation [Not Recovered/Not Resolved]
  - Leukopenia [Recovered/Resolved]
  - Rash erythematous [Unknown]
  - Off label use [Unknown]
  - Inappropriate schedule of product administration [Unknown]
  - Product use in unapproved indication [Unknown]

NARRATIVE: CASE EVENT DATE: 20140701
